FAERS Safety Report 9866209 (Version 2)
Quarter: 2014Q1

REPORT INFORMATION
  Report Type: Spontaneous
  Country: US (occurrence: US)
  Receive Date: 20140203
  Receipt Date: 20140203
  Transmission Date: 20141002
  Serious: No
  Sender: FDA-Public Use
  Company Number: US-ALLERGAN-1317198US

PATIENT
  Age: 50 Year
  Sex: Female

DRUGS (1)
  1. RESTASIS [Suspect]
     Indication: DRY EYE
     Dosage: 2 GTT, BID
     Route: 047
     Dates: start: 2011

REACTIONS (7)
  - Blepharitis [Recovered/Resolved]
  - Skin irritation [Recovered/Resolved]
  - Expired drug administered [Unknown]
  - Eye pain [Recovered/Resolved]
  - Erythema of eyelid [Recovered/Resolved]
  - Eyelid oedema [Recovered/Resolved]
  - Drug hypersensitivity [Recovered/Resolved]
